FAERS Safety Report 9699905 (Version 2)
Quarter: 2013Q4

REPORT INFORMATION
  Report Type: Spontaneous
  Country: DE (occurrence: DE)
  Receive Date: 20131121
  Receipt Date: 20131202
  Transmission Date: 20140711
  Serious: Yes (Hospitalization, Other)
  Sender: FDA-Public Use
  Company Number: DE-AMGEN-DEUSP2013080638

PATIENT
  Age: 80 Year
  Sex: Female
  Weight: 85 kg

DRUGS (3)
  1. PROLIA [Suspect]
     Indication: OSTEOPOROSIS POSTMENOPAUSAL
     Dosage: 60 MG, Q6MO
     Route: 058
     Dates: start: 20130107
  2. FALITHROM [Concomitant]
     Indication: ATRIAL FIBRILLATION
     Route: 065
  3. CALCIMAGON D3 [Concomitant]
     Indication: OSTEOPOROSIS
     Route: 065

REACTIONS (2)
  - Femur fracture [Recovering/Resolving]
  - Fall [Unknown]
